FAERS Safety Report 22784422 (Version 2)
Quarter: 2023Q4

REPORT INFORMATION
  Report Type: Report from Study
  Country: US (occurrence: US)
  Receive Date: 20230803
  Receipt Date: 20231009
  Transmission Date: 20240110
  Serious: Yes (Disabling)
  Sender: FDA-Public Use
  Company Number: US-BoehringerIngelheim-2022-BI-209532

PATIENT
  Age: 90 Year
  Sex: Male

DRUGS (3)
  1. OFEV [Suspect]
     Active Substance: NINTEDANIB
     Indication: Interstitial lung disease
     Route: 048
     Dates: start: 20221117
  2. OFEV [Suspect]
     Active Substance: NINTEDANIB
     Indication: Idiopathic pulmonary fibrosis
     Route: 048
     Dates: start: 202211
  3. OFEV [Suspect]
     Active Substance: NINTEDANIB
     Route: 048
     Dates: start: 20221222

REACTIONS (7)
  - Constipation [Recovered/Resolved]
  - Vomiting [Not Recovered/Not Resolved]
  - Abdominal pain upper [Recovering/Resolving]
  - Dyspepsia [Recovering/Resolving]
  - Nausea [Not Recovered/Not Resolved]
  - Constipation [Unknown]
  - Abdominal discomfort [Not Recovered/Not Resolved]

NARRATIVE: CASE EVENT DATE: 20221208
